APPROVED DRUG PRODUCT: FAMOTIDINE PRESERVATIVE FREE
Active Ingredient: FAMOTIDINE
Strength: 10MG/ML
Dosage Form/Route: INJECTABLE;INJECTION
Application: A075708 | Product #001
Applicant: APOTHECON INC DIV BRISTOL MYERS SQUIBB
Approved: Apr 16, 2001 | RLD: No | RS: No | Type: DISCN